FAERS Safety Report 9375548 (Version 1)
Quarter: 2013Q2

REPORT INFORMATION
  Report Type: Spontaneous
  Country: US (occurrence: US)
  Receive Date: 20130628
  Receipt Date: 20130628
  Transmission Date: 20140414
  Serious: Yes (Hospitalization)
  Sender: FDA-Public Use
  Company Number: US-B.I. PHARMACEUTICALS,INC./RIDGEFIELD-2013-BI-13015BP

PATIENT
  Age: 87 Year
  Sex: Male
  Weight: 72.57 kg

DRUGS (8)
  1. PRADAXA [Suspect]
     Indication: ANTICOAGULANT THERAPY
     Dosage: 150 MG
     Route: 048
     Dates: start: 20110627, end: 20120628
  2. COLCRYS [Concomitant]
  3. FIBER [Concomitant]
  4. FISH OIL [Concomitant]
  5. FLAXSEED [Concomitant]
  6. LOSARTAN [Concomitant]
  7. METOPROLOL [Concomitant]
  8. VITAMIN D [Concomitant]

REACTIONS (2)
  - Gastrointestinal haemorrhage [Recovered/Resolved]
  - Anaemia [Unknown]
